FAERS Safety Report 14008285 (Version 11)
Quarter: 2019Q1

REPORT INFORMATION
  Report Type: Spontaneous
  Country: IN (occurrence: IN)
  Receive Date: 20170925
  Receipt Date: 20190115
  Transmission Date: 20190417
  Serious: Yes (Other)
  Sender: FDA-Public Use
  Company Number: IN-PFIZER INC-2017271815

PATIENT
  Sex: Male

DRUGS (15)
  1. CHAMPIX [Suspect]
     Active Substance: VARENICLINE TARTRATE
     Indication: SMOKING CESSATION THERAPY
     Dosage: 1 MG, TWICE A DAY
     Route: 048
     Dates: start: 2016, end: 2016
  2. CHAMPIX [Suspect]
     Active Substance: VARENICLINE TARTRATE
     Dosage: 0.5 MG, UNK
     Route: 048
     Dates: start: 20170918, end: 20170921
  3. CHAMPIX [Suspect]
     Active Substance: VARENICLINE TARTRATE
     Dosage: UNK
     Route: 048
     Dates: start: 2017, end: 20171005
  4. CHAMPIX [Suspect]
     Active Substance: VARENICLINE TARTRATE
     Dosage: UNK
     Route: 048
     Dates: start: 20180501, end: 20180502
  5. CHAMPIX [Suspect]
     Active Substance: VARENICLINE TARTRATE
     Dosage: UNK
     Route: 048
     Dates: start: 20180301, end: 20180308
  6. CHAMPIX [Suspect]
     Active Substance: VARENICLINE TARTRATE
     Dosage: 1 MG, 1 TAB PER DAY(IN EVENING)
     Route: 048
     Dates: start: 201811
  7. CHAMPIX [Suspect]
     Active Substance: VARENICLINE TARTRATE
     Dosage: UNK
     Route: 048
     Dates: start: 201805
  8. CHAMPIX [Suspect]
     Active Substance: VARENICLINE TARTRATE
     Indication: ASTHMA
     Dosage: 1 DF, ONCE A DAY (EVENING)
     Route: 048
     Dates: start: 20170808, end: 20170809
  9. CHAMPIX [Suspect]
     Active Substance: VARENICLINE TARTRATE
     Dosage: 0.5 MG, DAILY
     Route: 048
     Dates: start: 20170830, end: 2017
  10. CHAMPIX [Suspect]
     Active Substance: VARENICLINE TARTRATE
     Dosage: 2 MG, UNK (DURING LAST WEEK)
     Route: 048
     Dates: start: 201711, end: 201712
  11. CHAMPIX [Suspect]
     Active Substance: VARENICLINE TARTRATE
     Dosage: UNK
     Route: 048
     Dates: start: 20180415, end: 20180422
  12. CHAMPIX [Suspect]
     Active Substance: VARENICLINE TARTRATE
     Dosage: UNK
     Route: 048
     Dates: start: 2018, end: 20180615
  13. CHAMPIX [Suspect]
     Active Substance: VARENICLINE TARTRATE
     Dosage: UNK
     Route: 048
  14. CHAMPIX [Suspect]
     Active Substance: VARENICLINE TARTRATE
     Dosage: 2 MG, ONCE A DAY (REGULARLY)
     Route: 048
     Dates: start: 20171231, end: 20180130
  15. CHAMPIX [Suspect]
     Active Substance: VARENICLINE TARTRATE
     Dosage: UNK
     Route: 048
     Dates: start: 20180508, end: 20180515

REACTIONS (25)
  - Gastric ulcer [Recovered/Resolved]
  - Pyrexia [Recovered/Resolved]
  - Tobacco user [Unknown]
  - Nausea [Recovered/Resolved]
  - Muscular weakness [Recovered/Resolved]
  - Gastrointestinal disorder [Recovered/Resolved]
  - Anger [Unknown]
  - Cough [Not Recovered/Not Resolved]
  - Affective disorder [Unknown]
  - Dizziness [Recovered/Resolved]
  - Dysphonia [Recovered/Resolved]
  - Withdrawal syndrome [Unknown]
  - Malaise [Not Recovered/Not Resolved]
  - Vomiting [Recovered/Resolved]
  - Abdominal pain upper [Recovered/Resolved]
  - Pain [Recovered/Resolved]
  - Irritability [Unknown]
  - Intentional product misuse [Unknown]
  - Angina pectoris [Not Recovered/Not Resolved]
  - Hypoaesthesia [Recovered/Resolved]
  - Hypertension [Recovered/Resolved]
  - Stress [Unknown]
  - Asthma [Recovered/Resolved]
  - Pharyngitis [Recovered/Resolved]
  - Condition aggravated [Recovered/Resolved]

NARRATIVE: CASE EVENT DATE: 2016
